FAERS Safety Report 4499819-0 (Version None)
Quarter: 2004Q4

REPORT INFORMATION
  Report Type: 
  Country: None (occurrence: None)
  Receive Date: 20041108
  Receipt Date: 20041101
  Transmission Date: 20050328
  Serious: Yes (Hospitalization)
  Sender: FDA-Public Use
  Company Number: 200412934GDS

PATIENT
  Age: 75 Year
  Sex: Female

DRUGS (8)
  1. ASPIRIN [Suspect]
     Dosage: 100 MG, QD, ORAL
     Route: 048
     Dates: end: 20040929
  2. FLECTOR (DICLOFENAC SODIUM) [Suspect]
     Indication: PAIN
     Dosage: TOPICAL
     Route: 061
     Dates: start: 20040901, end: 20040929
  3. INSULIN MIXTARD [Concomitant]
  4. TARKS (VERAPAMIL) [Concomitant]
  5. TRANDOLAPRIL [Concomitant]
  6. TOREM (TORASEMIDE) [Concomitant]
  7. ZOCOR [Concomitant]
  8. SERESTA [Concomitant]

REACTIONS (13)
  - ANAEMIA [None]
  - BLOOD SODIUM DECREASED [None]
  - BLOOD UREA INCREASED [None]
  - DIZZINESS [None]
  - FIBRIN D DIMER INCREASED [None]
  - GASTRITIS [None]
  - HYPERGLYCAEMIA [None]
  - HYPOTENSION [None]
  - MYOCARDIAL INFARCTION [None]
  - MYOCARDIAL ISCHAEMIA [None]
  - TACHYCARDIA [None]
  - TROPONIN INCREASED [None]
  - VERTIGO [None]
